FAERS Safety Report 9373244 (Version 1)
Quarter: 2013Q2

REPORT INFORMATION
  Report Type: Spontaneous
  Country: US (occurrence: US)
  Receive Date: 20130627
  Receipt Date: 20130627
  Transmission Date: 20140414
  Serious: Yes (Hospitalization, Other)
  Sender: FDA-Public Use
  Company Number: US-ROXANE LABORATORIES, INC.-2013-RO-01035RO

PATIENT
  Age: 58 Year
  Sex: Female

DRUGS (5)
  1. MERCAPTOPURINE [Suspect]
     Indication: COLITIS MICROSCOPIC
     Dosage: 50 MG
  2. PREDNISONE [Suspect]
     Indication: COLITIS MICROSCOPIC
  3. METHOTREXATE [Suspect]
     Indication: COLITIS MICROSCOPIC
     Route: 048
  4. INFLIXIMAB [Suspect]
     Indication: COLITIS MICROSCOPIC
     Route: 042
  5. OCTREOTIDE [Suspect]
     Indication: COLITIS MICROSCOPIC
     Dosage: 100 MCG
     Route: 058

REACTIONS (2)
  - Pancreatitis acute [Unknown]
  - Transaminases increased [Recovered/Resolved]
